FAERS Safety Report 15340470 (Version 1)
Quarter: 2018Q3

REPORT INFORMATION
  Report Type: Report from Study
  Country: None (occurrence: CZ)
  Receive Date: 20180831
  Receipt Date: 20180831
  Transmission Date: 20181010
  Serious: Yes (Hospitalization)
  Sender: FDA-Public Use
  Company Number: CZ-ABBVIE-16P-217-1774559-00

PATIENT
  Age: 69 Year
  Sex: Male
  Weight: 76 kg

DRUGS (110)
  1. RITUXIMAB. [Suspect]
     Active Substance: RITUXIMAB
     Indication: DIFFUSE LARGE B-CELL LYMPHOMA
  2. PREDNISONE. [Suspect]
     Active Substance: PREDNISONE
     Indication: DIFFUSE LARGE B-CELL LYMPHOMA
  3. BUDESONIDUM [Concomitant]
     Active Substance: BUDESONIDE
     Dates: start: 20161205
  4. HYDROCORTISONE. [Concomitant]
     Active Substance: HYDROCORTISONE
     Dates: start: 20161212, end: 20161212
  5. FILGRASTIM [Concomitant]
     Active Substance: FILGRASTIM
     Dates: start: 20161204, end: 20161204
  6. GLYCEROLUM [Concomitant]
     Dates: start: 20161031, end: 20161031
  7. AMIKACINI [Concomitant]
     Indication: MUCOSAL INFLAMMATION
     Dates: start: 20161106, end: 20161109
  8. METOCLOPRAMIDE. [Concomitant]
     Active Substance: METOCLOPRAMIDE
     Dates: start: 20161130, end: 20161201
  9. IRRADIATED PACKED RED BLOOD CELLS [Concomitant]
     Dates: start: 20161221, end: 20161221
  10. ALPRAZOLAMUM [Concomitant]
     Indication: PROPHYLAXIS
     Dates: start: 20161108, end: 20161109
  11. RABEPRAZOLUM NATRICUM [Concomitant]
     Dates: start: 20161205, end: 20161219
  12. FLUCONAZOLUM [Concomitant]
     Indication: FEBRILE NEUTROPENIA
     Dates: start: 20161031, end: 20161101
  13. VINCRISTINE [Suspect]
     Active Substance: VINCRISTINE
     Indication: DIFFUSE LARGE B-CELL LYMPHOMA
  14. NORMAL SALINE [Concomitant]
     Active Substance: SODIUM CHLORIDE
     Dates: start: 20161219
  15. OMEPRAZOLUM [Concomitant]
     Indication: PROPHYLAXIS
     Dates: start: 20161004, end: 20161120
  16. FUROSEMIDUM [Concomitant]
     Active Substance: FUROSEMIDE
     Dates: start: 20161027, end: 20161030
  17. FUROSEMIDUM [Concomitant]
     Active Substance: FUROSEMIDE
     Dates: start: 20161108, end: 20161109
  18. PARACETAMOLUM [Concomitant]
     Active Substance: ACETAMINOPHEN
     Dates: start: 20161121, end: 20161121
  19. BENZYDAMINI HYDROCHLORIDUM [Concomitant]
     Dates: start: 20161014, end: 20161101
  20. FILGRASTIM [Concomitant]
     Active Substance: FILGRASTIM
     Indication: PROPHYLAXIS
     Dates: start: 20161013, end: 20161013
  21. GLYCEROLUM [Concomitant]
     Indication: CONSTIPATION
     Dates: start: 20161022, end: 20161022
  22. LACTULOSUM [Concomitant]
     Indication: CONSTIPATION PROPHYLAXIS
     Dates: start: 20161030, end: 20161031
  23. METOCLOPRAMIDE. [Concomitant]
     Active Substance: METOCLOPRAMIDE
     Indication: NAUSEA
     Dates: start: 20161105, end: 20161105
  24. KETOTIFEN FUMARATE. [Concomitant]
     Active Substance: KETOTIFEN FUMARATE
     Indication: ASTHMA
     Dates: start: 2010, end: 20161118
  25. SALBUTAMOLI SULFAS [Concomitant]
     Indication: ASTHMA
     Dates: start: 2010
  26. FUROSEMIDUM [Concomitant]
     Active Substance: FUROSEMIDE
     Dates: start: 20161220, end: 20161224
  27. PARACETAMOLUM [Concomitant]
     Active Substance: ACETAMINOPHEN
     Dates: start: 201702, end: 201702
  28. BISULEPIN HYDROCHLORIDE [Concomitant]
     Active Substance: BISULEPIN HYDROCHLORIDE
     Indication: INFUSION RELATED REACTION
     Dates: start: 20161010, end: 20161010
  29. GRANISETRON [Concomitant]
     Active Substance: GRANISETRON
     Indication: PROPHYLAXIS OF NAUSEA AND VOMITING
     Dates: start: 20161027, end: 20161027
  30. FILGRASTIM [Concomitant]
     Active Substance: FILGRASTIM
     Indication: NEUTROPENIA
     Dates: start: 20161014, end: 20161023
  31. FILGRASTIM [Concomitant]
     Active Substance: FILGRASTIM
     Dates: start: 20161102, end: 20161108
  32. METAMIZOLE SODIUM SALT MONOHYDRATE [Concomitant]
     Indication: CELLULITIS
     Dates: start: 20161021
  33. ZOLPIDEMI TARTRAS [Concomitant]
     Indication: PRODUCT USED FOR UNKNOWN INDICATION
     Dates: start: 20161023, end: 20161023
  34. METHOTREXATUM [Concomitant]
     Active Substance: METHOTREXATE
     Indication: PROPHYLAXIS
     Dates: start: 20161027, end: 20161027
  35. ACICLOVIRUM [Concomitant]
     Dates: start: 20161014
  36. FENOTEROL HYDROBROMIDE [Concomitant]
     Active Substance: FENOTEROL HYDROBROMIDE
     Indication: INFECTION PROPHYLAXIS
     Dates: start: 20161221, end: 20170104
  37. NORMAL SALINE [Concomitant]
     Active Substance: SODIUM CHLORIDE
     Indication: CELLULITIS
     Dates: start: 20161004, end: 20161011
  38. SALBUTAMOLI SULFAS [Concomitant]
     Dates: start: 201612
  39. PARACETAMOLUM [Concomitant]
     Active Substance: ACETAMINOPHEN
     Dates: start: 20161027, end: 20161027
  40. GRANISETRON [Concomitant]
     Active Substance: GRANISETRON
     Dates: start: 20161105, end: 20161106
  41. BENZYDAMINI HYDROCHLORIDUM [Concomitant]
     Dates: start: 20161027, end: 20161027
  42. FILGRASTIM [Concomitant]
     Active Substance: FILGRASTIM
     Dates: start: 20161023, end: 20161023
  43. METAMIZOLE SODIUM SALT MONOHYDRATE [Concomitant]
     Indication: PYREXIA
     Dates: start: 20161023
  44. TIGECYCLINE. [Concomitant]
     Active Substance: TIGECYCLINE
     Indication: MUCOSAL INFLAMMATION
     Dates: start: 20161106, end: 20161109
  45. CLINDAMYCIN. [Concomitant]
     Active Substance: CLINDAMYCIN
     Indication: MUCOSAL INFLAMMATION
     Dates: start: 20161021, end: 20161101
  46. VALSARTAN COMP [Concomitant]
     Active Substance: HYDROCHLOROTHIAZIDE\VALSARTAN
     Indication: HYPERTENSION
     Dates: start: 20161014
  47. ALLOPURINOL. [Concomitant]
     Active Substance: ALLOPURINOL
     Indication: PROPHYLAXIS
     Dates: start: 20161004
  48. DOXORUBICIN [Suspect]
     Active Substance: DOXORUBICIN
     Indication: DIFFUSE LARGE B-CELL LYMPHOMA
  49. PREDNISONE. [Suspect]
     Active Substance: PREDNISONE
     Indication: NON-HODGKIN^S LYMPHOMA
     Dosage: MOST RECENT DOSE (100 MG) ON 25/NOV/2016 ON DAYS (1?5)
     Route: 048
     Dates: start: 20161007
  50. BUDESONIDUM [Concomitant]
     Active Substance: BUDESONIDE
     Indication: ASTHMA
     Dates: start: 20161129
  51. NORMAL SALINE [Concomitant]
     Active Substance: SODIUM CHLORIDE
     Dates: start: 20161105, end: 20161109
  52. OMEPRAZOLUM [Concomitant]
     Dates: start: 20161130, end: 20161204
  53. FUROSEMIDUM [Concomitant]
     Active Substance: FUROSEMIDE
     Dates: start: 20161023, end: 20161025
  54. HYDROCORTISONE. [Concomitant]
     Active Substance: HYDROCORTISONE
     Indication: PREMEDICATION
     Dates: start: 20161010, end: 20161010
  55. HYDROCORTISONE. [Concomitant]
     Active Substance: HYDROCORTISONE
     Indication: INFUSION RELATED REACTION
     Dates: start: 20161010, end: 20161010
  56. PARACETAMOLUM [Concomitant]
     Active Substance: ACETAMINOPHEN
     Indication: PREMEDICATION
     Dates: start: 20161010, end: 20161010
  57. BENZYDAMINI HYDROCHLORIDUM [Concomitant]
     Indication: MUCOSAL INFLAMMATION
     Dates: start: 20161014, end: 20161026
  58. FILGRASTIM [Concomitant]
     Active Substance: FILGRASTIM
     Dates: start: 20161126, end: 20161218
  59. METAMIZOLE SODIUM SALT MONOHYDRATE [Concomitant]
     Indication: MUCOSAL INFLAMMATION
     Dates: start: 20161109, end: 20161110
  60. IRRADIATED PACKED RED BLOOD CELLS [Concomitant]
     Indication: ANAEMIA
     Dosage: 2
     Dates: start: 20161108, end: 20161108
  61. CIPROFLOXACIN HYDROCHLORIDE. [Concomitant]
     Active Substance: CIPROFLOXACIN HYDROCHLORIDE
     Indication: PNEUMONIA
     Dates: start: 20161222, end: 20170104
  62. AMBROXOL HYDROCHLORIDE [Concomitant]
     Active Substance: AMBROXOL HYDROCHLORIDE
     Indication: INFECTION PROPHYLAXIS
     Dates: start: 20161221, end: 20170104
  63. OMEPRAZOLE. [Concomitant]
     Active Substance: OMEPRAZOLE
     Indication: PROPHYLAXIS
     Dates: start: 20161219, end: 20170104
  64. CIPROFLOXACINUM [Concomitant]
     Indication: PROPHYLAXIS
     Dates: start: 20161205, end: 20161211
  65. FLUCONAZOLUM [Concomitant]
     Indication: CANDIDA INFECTION
     Dates: start: 20161221, end: 20170103
  66. MOXIFLOXACINUM [Concomitant]
     Indication: INFECTION PROPHYLAXIS
     Dates: start: 20161110, end: 20161114
  67. VENETOCLAX. [Suspect]
     Active Substance: VENETOCLAX
     Indication: NON-HODGKIN^S LYMPHOMA
     Dosage: MOST RECENT DOSE (800 MG) ON 19/DEC/2016
     Route: 048
     Dates: start: 20161010
  68. RITUXIMAB. [Suspect]
     Active Substance: RITUXIMAB
     Indication: NON-HODGKIN^S LYMPHOMA
     Dosage: MOST RECENT DOSE (735 MG) ON 21/NOV/ 2016 AT 1130
     Route: 042
     Dates: start: 20161007
  69. CYCLOPHOSPHAMIDE. [Suspect]
     Active Substance: CYCLOPHOSPHAMIDE
     Indication: NON-HODGKIN^S LYMPHOMA
     Dosage: MOST RECENT DOSE (1470 MG) ON 21/NOV/2016 AT 1425
     Route: 042
     Dates: start: 20161008
  70. CYCLOPHOSPHAMIDE. [Suspect]
     Active Substance: CYCLOPHOSPHAMIDE
     Indication: DIFFUSE LARGE B-CELL LYMPHOMA
  71. FILGRASTIM [Concomitant]
     Active Substance: FILGRASTIM
     Dates: start: 20161219, end: 20161224
  72. INADINE [Concomitant]
     Indication: CELLULITIS
     Dates: start: 20161028, end: 20161101
  73. BISULEPIN HYDROCHLORIDE [Concomitant]
     Active Substance: BISULEPIN HYDROCHLORIDE
     Indication: RASH
     Dates: start: 20161029, end: 20161029
  74. CAPHOSOL [Concomitant]
     Active Substance: CALCIUM CHLORIDE\SODIUM CHLORIDE\SODIUM PHOSPHATE, DIBASIC, ANHYDROUS\SODIUM PHOSPHATE, MONOBASIC, ANHYDROUS
     Indication: MUCOSAL INFLAMMATION
     Dates: start: 20161105, end: 20161109
  75. RABEPRAZOLUM NATRICUM [Concomitant]
     Dates: start: 20161121
  76. FORMOTEROLI FUMARAS [Concomitant]
     Dates: start: 20161204, end: 20161218
  77. OSELTAMIVIR [Concomitant]
     Active Substance: OSELTAMIVIR
     Indication: INFECTION PROPHYLAXIS
     Dates: start: 20161219, end: 20161222
  78. AMLODIPIN [Concomitant]
     Active Substance: AMLODIPINE BESYLATE
     Dates: start: 20161022, end: 20161031
  79. VENETOCLAX. [Suspect]
     Active Substance: VENETOCLAX
     Indication: DIFFUSE LARGE B-CELL LYMPHOMA
  80. LATANOPROSTUM [Concomitant]
     Indication: GLAUCOMA
     Dates: start: 20161005, end: 20161006
  81. KETOTIFEN FUMARATE. [Concomitant]
     Active Substance: KETOTIFEN FUMARATE
     Indication: ASTHMA
     Dates: start: 2010
  82. NORMAL SALINE [Concomitant]
     Active Substance: SODIUM CHLORIDE
     Dates: start: 20161021, end: 20161029
  83. NORMAL SALINE [Concomitant]
     Active Substance: SODIUM CHLORIDE
     Dates: start: 20161130
  84. NADROPARINUM CALCICUM [Concomitant]
     Indication: THROMBOSIS PROPHYLAXIS
     Dates: start: 20161004, end: 20161013
  85. FUROSEMIDUM [Concomitant]
     Active Substance: FUROSEMIDE
     Indication: PROPHYLAXIS
     Dates: start: 20161006, end: 20161013
  86. HYDROCORTISONE. [Concomitant]
     Active Substance: HYDROCORTISONE
     Dates: start: 20161027, end: 20161027
  87. GRANISETRON [Concomitant]
     Active Substance: GRANISETRON
     Indication: NAUSEA
     Dates: start: 20161011, end: 20161011
  88. GRANISETRON [Concomitant]
     Active Substance: GRANISETRON
     Dates: start: 20161107, end: 20161110
  89. CEFUROXIME AXETIL. [Concomitant]
     Active Substance: CEFUROXIME AXETIL
     Indication: INFECTION PROPHYLAXIS
     Dates: start: 20161014, end: 20161015
  90. FILGRASTIM [Concomitant]
     Active Substance: FILGRASTIM
     Dates: start: 20161021, end: 20161022
  91. TRAMADOLI HYDROCHLORIDE [Concomitant]
     Indication: MUCOSAL INFLAMMATION
     Dates: start: 20161105, end: 20161108
  92. RABEPRAZOLUM NATRICUM [Concomitant]
     Indication: PROPHYLAXIS
     Dates: start: 20161110, end: 20161129
  93. ACICLOVIRUM [Concomitant]
     Indication: INFECTION PROPHYLAXIS
     Dates: start: 20161202, end: 20161219
  94. IPRATROPIUM BROMIDE. [Concomitant]
     Active Substance: IPRATROPIUM BROMIDE
     Indication: INFECTION PROPHYLAXIS
     Dates: start: 20161221, end: 20170104
  95. DOXORUBICIN [Suspect]
     Active Substance: DOXORUBICIN
     Indication: NON-HODGKIN^S LYMPHOMA
     Dosage: MOST RECENT DOSE (98 MG) ON 21/NOV/2016 AT 1352
     Route: 042
     Dates: start: 20161008
  96. VINCRISTINE [Suspect]
     Active Substance: VINCRISTINE
     Indication: NON-HODGKIN^S LYMPHOMA
     Dosage: MOST RECENT DOSE (2 MG) ON 21/NOV/2016 AT 1350
     Route: 042
     Dates: start: 20161008
  97. NORMAL SALINE [Concomitant]
     Active Substance: SODIUM CHLORIDE
     Indication: PROPHYLAXIS
     Dates: start: 20161021
  98. HYDROCORTISONE. [Concomitant]
     Active Substance: HYDROCORTISONE
     Dates: start: 20161121, end: 20161121
  99. PARACETAMOLUM [Concomitant]
     Active Substance: ACETAMINOPHEN
     Dates: start: 20161212, end: 20161212
  100. BISULEPIN HYDROCHLORIDE [Concomitant]
     Active Substance: BISULEPIN HYDROCHLORIDE
     Indication: PREMEDICATION
     Dates: start: 20161121, end: 20161121
  101. BISULEPIN HYDROCHLORIDE [Concomitant]
     Active Substance: BISULEPIN HYDROCHLORIDE
     Dates: start: 20161212, end: 20161212
  102. FILGRASTIM [Concomitant]
     Active Substance: FILGRASTIM
     Dates: start: 20161117, end: 20161218
  103. POVIDONUM IODINATUM [Concomitant]
     Indication: CELLULITIS
     Dates: start: 20161023, end: 20161028
  104. TRAMADOLI HYDROCHLORIDE [Concomitant]
     Dates: start: 20161221, end: 20161227
  105. METOCLOPRAMIDE. [Concomitant]
     Active Substance: METOCLOPRAMIDE
     Indication: PROPHYLAXIS OF NAUSEA AND VOMITING
     Dates: start: 20161107, end: 20161107
  106. TRIMECAIN [Concomitant]
     Indication: MUCOSAL INFLAMMATION
     Dates: start: 20161108, end: 20170314
  107. FORMOTEROLI FUMARAS [Concomitant]
     Indication: ASTHMA
     Dates: start: 2010, end: 20161129
  108. OMEPRAZOLE. [Concomitant]
     Active Substance: OMEPRAZOLE
     Dates: start: 20161130, end: 20161204
  109. GRANISETRONUM [Concomitant]
     Indication: VOMITING
     Dates: start: 20161130, end: 20161201
  110. AMLODIPIN [Concomitant]
     Active Substance: AMLODIPINE BESYLATE
     Indication: HYPERTENSION
     Dates: start: 20161105, end: 20161109

REACTIONS (3)
  - Neutropenia [Recovered/Resolved]
  - Febrile neutropenia [Recovered/Resolved]
  - Staphylococcal sepsis [Recovered/Resolved]

NARRATIVE: CASE EVENT DATE: 20161105
